FAERS Safety Report 4867015-0 (Version None)
Quarter: 2005Q4

REPORT INFORMATION
  Report Type: 
  Country: None (occurrence: None)
  Receive Date: 20051227
  Receipt Date: 20051214
  Transmission Date: 20060501
  Serious: Yes (Hospitalization)
  Sender: FDA-Public Use
  Company Number: FR-MERCK-0512FRA00050

PATIENT
  Age: 75 Year
  Sex: Female
  Weight: 53 kg

DRUGS (7)
  1. HYZAAR [Suspect]
     Indication: HYPERTENSION
     Route: 048
     Dates: start: 20050909, end: 20051004
  2. INSULIN GLARGINE [Concomitant]
     Indication: DIABETES MELLITUS INSULIN-DEPENDENT
     Route: 058
  3. REPAGLINIDE [Concomitant]
     Indication: DIABETES MELLITUS
     Route: 048
  4. TRIMETAZIDINE HYDROCHLORIDE [Concomitant]
     Route: 048
  5. NIAOULI OIL AND QUININE BENZOATE AND THIAMINE HYDROCHLORIDE [Concomitant]
     Route: 048
  6. BUFLOMEDIL HYDROCHLORIDE [Concomitant]
     Route: 048
  7. HYDROCORTISONE ACEPONATE [Concomitant]
     Route: 061

REACTIONS (2)
  - PRURITUS [None]
  - SKIN EXFOLIATION [None]
